FAERS Safety Report 9098967 (Version 2)
Quarter: 2013Q1

REPORT INFORMATION
  Report Type: Report from Study
  Country: US (occurrence: US)
  Receive Date: 20130213
  Receipt Date: 20130315
  Transmission Date: 20140127
  Serious: Yes (Other)
  Sender: FDA-Public Use
  Company Number: US-NAPPMUNDI-USA-2013-0098669

PATIENT
  Sex: Male
  Weight: 77.1 kg

DRUGS (7)
  1. OXYCONTIN (NDA 22-272) [Suspect]
     Indication: PAIN
     Dosage: 40 MG, Q12H
     Route: 048
     Dates: start: 2005
  2. OXYCONTIN (NDA 22-272) [Suspect]
     Indication: INTERVERTEBRAL DISC DEGENERATION
  3. OXYCONTIN (NDA 22-272) [Suspect]
     Indication: ARTHRITIS
  4. OXYCONTIN (NDA 22-272) [Suspect]
     Indication: IRRITABLE BOWEL SYNDROME
  5. OXYCODONE HCL CR TABLETS (SIMILAR TO NDA 20-553) [Suspect]
     Indication: PRODUCT USED FOR UNKNOWN INDICATION
     Route: 048
  6. BAYER ASPIRIN [Concomitant]
     Indication: PRODUCT USED FOR UNKNOWN INDICATION
  7. CIPRO                              /00697201/ [Concomitant]
     Indication: PRODUCT USED FOR UNKNOWN INDICATION
     Dosage: 1000 MG, PRN

REACTIONS (4)
  - Renal cyst [Not Recovered/Not Resolved]
  - Pain [Unknown]
  - Drug intolerance [Unknown]
  - Treatment noncompliance [None]
